FAERS Safety Report 8410802-2 (Version None)
Quarter: 2012Q2

REPORT INFORMATION
  Report Type: 
  Country: None (occurrence: None)
  Receive Date: 20120605
  Receipt Date: 20120531
  Transmission Date: 20120825
  Serious: Yes (Hospitalization, Other)
  Sender: FDA-Public Use
  Company Number: BR-SANOFI-AVENTIS-2012SA039172

PATIENT
  Age: 70 Year
  Sex: Male
  Weight: 65 kg

DRUGS (3)
  1. SEROQUEL [Concomitant]
     Route: 065
     Dates: start: 20110101
  2. SOLOSTAR [Suspect]
     Dosage: STARTED ABOUT 8 YEARS AGO
     Route: 058
  3. LANTUS [Suspect]
     Dosage: STARTED ABOUT 8 YEARS AGO
     Route: 058

REACTIONS (18)
  - HYPOPNOEA [None]
  - DIABETIC RETINOPATHY [None]
  - DEMENTIA ALZHEIMER'S TYPE [None]
  - HYPERGLYCAEMIA [None]
  - RESPIRATORY ARREST [None]
  - EATING DISORDER [None]
  - TREMOR [None]
  - SCHIZOPHRENIA [None]
  - AGITATION [None]
  - HYPOGLYCAEMIA [None]
  - SOMNOLENCE [None]
  - BED REST [None]
  - IMPAIRED HEALING [None]
  - ASTHENIA [None]
  - FEELING ABNORMAL [None]
  - HYPERHIDROSIS [None]
  - DEPRESSION [None]
  - MICTURITION URGENCY [None]
